FAERS Safety Report 5524836-9 (Version None)
Quarter: 2007Q4

REPORT INFORMATION
  Report Type: 
  Country: None (occurrence: None)
  Receive Date: 20071126
  Receipt Date: 20071116
  Transmission Date: 20080405
  Serious: Yes (Hospitalization)
  Sender: FDA-Public Use
  Company Number: PHHO2007DE03301

PATIENT
  Age: 47 Year
  Sex: Female
  Weight: 65 kg

DRUGS (4)
  1. ZOLEDRONIC ACID [Suspect]
     Indication: BREAST CANCER
     Dosage: 4MG
     Route: 042
     Dates: start: 20061106
  2. CALCIUM [Concomitant]
  3. DEKRISTOL [Concomitant]
  4. TAMOXIFEN CITRATE [Concomitant]

REACTIONS (12)
  - AORTIC VALVE STENOSIS [None]
  - EXTENSOR PLANTAR RESPONSE [None]
  - GAIT DISTURBANCE [None]
  - HEARING IMPAIRED [None]
  - HYPOTENSION [None]
  - MACROANGIOPATHY [None]
  - NAUSEA [None]
  - NYSTAGMUS [None]
  - RETCHING [None]
  - TRANSIENT ISCHAEMIC ATTACK [None]
  - VERTIGO [None]
  - VISUAL DISTURBANCE [None]
